FAERS Safety Report 5825197-8 (Version None)
Quarter: 2008Q3

REPORT INFORMATION
  Report Type: 
  Country: None (occurrence: None)
  Receive Date: 20080729
  Receipt Date: 20080721
  Transmission Date: 20090109
  Serious: Yes (Hospitalization, Other)
  Sender: FDA-Public Use
  Company Number: PHHY2008FR15352

PATIENT

DRUGS (7)
  1. TEGRETOL [Suspect]
     Indication: EPILEPSY
     Dosage: 200 MG, TID
     Route: 048
  2. TERCIAN [Concomitant]
     Indication: ABNORMAL BEHAVIOUR
     Dosage: 50 MG, TID
     Route: 048
  3. FLUVOXAMINE MALEATE [Concomitant]
     Indication: ABNORMAL BEHAVIOUR
     Dosage: UNK
     Route: 048
  4. COZAAR [Concomitant]
     Indication: HYPERTENSION
     Dosage: 50 MG DAILY
     Route: 048
  5. KARDEGIC [Concomitant]
     Dosage: 300 MG DAILY
     Route: 048
  6. XATRAL [Concomitant]
     Indication: PROSTATIC ADENOMA
     Dosage: 10 MG DAILY
     Route: 048
  7. LASIX [Concomitant]
     Indication: HYPERTENSION
     Dosage: 40 MG DAILY
     Route: 048

REACTIONS (8)
  - ANORECTAL DISORDER [None]
  - COLONOSCOPY [None]
  - DIARRHOEA [None]
  - ESCHERICHIA BACTERAEMIA [None]
  - NAUSEA [None]
  - PSEUDOMEMBRANOUS COLITIS [None]
  - PYREXIA [None]
  - ULCER [None]
